FAERS Safety Report 5023138-7 (Version None)
Quarter: 2006Q2

REPORT INFORMATION
  Report Type: 
  Country: None (occurrence: None)
  Receive Date: 20060607
  Receipt Date: 20060607
  Transmission Date: 20061013
  Serious: Yes (Life-Threatening, Hospitalization)
  Sender: FDA-Public Use
  Company Number: None

PATIENT
  Age: 80 Year
  Sex: Female

DRUGS (8)
  1. MACUGEN [Suspect]
     Dosage: 0.3 MG
     Dates: start: 20060404
  2. ADVAIR DISKUS 100/50 [Concomitant]
  3. FOLIC ACID [Concomitant]
  4. METHOTREXATE [Concomitant]
  5. TOPRO [Concomitant]
  6. ACOTRIN [Concomitant]
  7. PROCARDIA [Concomitant]
  8. VITAMINS [Concomitant]

REACTIONS (2)
  - CEREBROVASCULAR ACCIDENT [None]
  - EYE HAEMORRHAGE [None]
